FAERS Safety Report 6722242-2 (Version None)
Quarter: 2010Q2

REPORT INFORMATION
  Report Type: 
  Country: None (occurrence: None)
  Receive Date: 20100512
  Receipt Date: 20100429
  Transmission Date: 20101027
  Serious: No
  Sender: FDA-Public Use
  Company Number: US-B.I. PHARMACEUTICALS,INC./RIDGEFIELD-2010-BP-04921BP

PATIENT
  Age: 14 Year
  Sex: Male

DRUGS (3)
  1. CATAPRES [Suspect]
     Indication: TOURETTE'S DISORDER
     Dosage: 0.3 MG
     Route: 048
     Dates: start: 20050101, end: 20060101
  2. ADVAIR DISKUS 100/50 [Concomitant]
     Indication: ASTHMA
  3. SINGULAIR [Concomitant]
     Indication: ASTHMA

REACTIONS (2)
  - LETHARGY [None]
  - SOMNOLENCE [None]
